FAERS Safety Report 14814000 (Version 1)
Quarter: 2018Q2

REPORT INFORMATION
  Report Type: Spontaneous
  Country: FR (occurrence: FR)
  Receive Date: 20180426
  Receipt Date: 20180426
  Transmission Date: 20180711
  Serious: Yes (Other)
  Sender: FDA-Public Use
  Company Number: FR-MERCK KGAA-2046587

PATIENT
  Age: 52 Year
  Sex: Female

DRUGS (2)
  1. NOVOTHYROX [Suspect]
     Active Substance: LEVOTHYROXINE SODIUM
  2. NOVOTHYROX [Suspect]
     Active Substance: LEVOTHYROXINE SODIUM
     Indication: PRODUCT USED FOR UNKNOWN INDICATION

REACTIONS (20)
  - Fatigue [None]
  - Swelling [None]
  - Hyperhidrosis [None]
  - Pain [None]
  - Impaired work ability [None]
  - Anger [None]
  - Blood thyroid stimulating hormone increased [None]
  - Depression [None]
  - Loss of personal independence in daily activities [None]
  - Insomnia [None]
  - Weight increased [None]
  - Crying [None]
  - Hypertension [None]
  - Musculoskeletal stiffness [None]
  - Irritability [None]
  - Ill-defined disorder [None]
  - Alopecia [None]
  - Thyroxine decreased [None]
  - Decreased interest [None]
  - Malaise [None]

NARRATIVE: CASE EVENT DATE: 20171030
